FAERS Safety Report 5709829-0 (Version None)
Quarter: 2008Q2

REPORT INFORMATION
  Report Type: 
  Country: None (occurrence: None)
  Receive Date: 20080418
  Receipt Date: 20070309
  Transmission Date: 20081010
  Serious: No
  Sender: FDA-Public Use
  Company Number: US-ASTRAZENECA-2007UW04464

PATIENT
  Sex: Female

DRUGS (1)
  1. TOPROL-XL [Suspect]
     Route: 048
     Dates: start: 20060101

REACTIONS (3)
  - CLUSTER HEADACHE [None]
  - DIARRHOEA [None]
  - DYSPEPSIA [None]
